FAERS Safety Report 5304251-3 (Version None)
Quarter: 2007Q2

REPORT INFORMATION
  Report Type: 
  Country: None (occurrence: None)
  Receive Date: 20070419
  Receipt Date: 20070419
  Transmission Date: 20071010
  Serious: Yes (Life-Threatening, Other)
  Sender: FDA-Public Use
  Company Number: None

PATIENT
  Age: 56 Year
  Sex: Male
  Weight: 86.1834 kg

DRUGS (3)
  1. OXYCODONE    80MG     IMPAX DISTRIBUTED BY DAVA [Suspect]
     Indication: BACK PAIN
     Dosage: 80 MG    4 PILLS DAILY  PO
     Route: 048
     Dates: start: 20070223, end: 20070407
  2. OXYCODONE    80MG     IMPAX DISTRIBUTED BY DAVA [Suspect]
     Indication: SPINAL FRACTURE
     Dosage: 80 MG    4 PILLS DAILY  PO
     Route: 048
     Dates: start: 20070223, end: 20070407
  3. OXYCODONE   80MG   IMPAX DISTRIBUTED BY DAVA [Suspect]

REACTIONS (15)
  - ABNORMAL DREAMS [None]
  - ANXIETY [None]
  - CONDITION AGGRAVATED [None]
  - DRUG WITHDRAWAL SYNDROME [None]
  - EMOTIONAL DISORDER [None]
  - FEELING COLD [None]
  - HYPERHIDROSIS [None]
  - INFLUENZA LIKE ILLNESS [None]
  - NAUSEA [None]
  - NERVOUSNESS [None]
  - NIGHTMARE [None]
  - PAIN [None]
  - PALPITATIONS [None]
  - RESTLESSNESS [None]
  - TREMOR [None]
